FAERS Safety Report 7692568-7 (Version None)
Quarter: 2011Q3

REPORT INFORMATION
  Report Type: 
  Country: None (occurrence: None)
  Receive Date: 20110819
  Receipt Date: 20110810
  Transmission Date: 20111222
  Serious: Yes (Other)
  Sender: FDA-Public Use
  Company Number: US-BIOGENIDEC-2011BI030732

PATIENT
  Sex: Female

DRUGS (2)
  1. TYSABRI [Suspect]
     Indication: MULTIPLE SCLEROSIS
     Route: 042
     Dates: start: 20100101, end: 20100914
  2. ANTI-DEPRESSANT [Concomitant]
     Indication: DEPRESSION

REACTIONS (2)
  - ANAPHYLACTIC SHOCK [None]
  - DEPRESSION [None]
